FAERS Safety Report 7543234-X (Version None)
Quarter: 2011Q2

REPORT INFORMATION
  Report Type: 
  Country: None (occurrence: None)
  Receive Date: 20110613
  Receipt Date: 20110603
  Transmission Date: 20111010
  Serious: Yes (Other)
  Sender: FDA-Public Use
  Company Number: US-ASTRAZENECA-2011SE34545

PATIENT
  Age: 49 Year
  Sex: Female

DRUGS (1)
  1. SEROQUEL [Suspect]
     Dosage: TOTAL DAILY DOSAGE AND FREQUENCY UNKNOWN.
     Route: 048

REACTIONS (1)
  - NEOPLASM MALIGNANT [None]
